FAERS Safety Report 20794927 (Version 1)
Quarter: 2022Q2

REPORT INFORMATION
  Report Type: Other
  Country: JP (occurrence: JP)
  Receive Date: 20220506
  Receipt Date: 20220506
  Transmission Date: 20220721
  Serious: Yes (Other)
  Sender: FDA-Public Use
  Company Number: JP-CHUGAI-2022016323

PATIENT
  Age: 66 Year
  Sex: Male
  Weight: 64.6 kg

DRUGS (9)
  1. ATEZOLIZUMAB [Suspect]
     Active Substance: ATEZOLIZUMAB
     Indication: Non-small cell lung cancer
     Dosage: 1200 MILLIGRAM, ONCE/3WEEKS
     Route: 041
     Dates: start: 20210929, end: 20211222
  2. ATEZOLIZUMAB [Suspect]
     Active Substance: ATEZOLIZUMAB
     Dosage: 1200 MILLIGRAM
     Route: 041
  3. BEVACIZUMAB [Suspect]
     Active Substance: BEVACIZUMAB
     Indication: Non-small cell lung cancer
     Route: 041
     Dates: start: 20210929, end: 20211201
  4. BEVACIZUMAB [Suspect]
     Active Substance: BEVACIZUMAB
     Route: 041
     Dates: start: 20211222
  5. CARBOPLATIN [Concomitant]
     Active Substance: CARBOPLATIN
     Indication: Non-small cell lung cancer
     Dosage: 480 MILLIGRAM, SINGLE
     Route: 041
     Dates: start: 20210929, end: 20210929
  6. CARBOPLATIN [Concomitant]
     Active Substance: CARBOPLATIN
     Dosage: 430 MILLIGRAM
     Route: 041
     Dates: start: 20211020, end: 20211201
  7. PACLITAXEL [Concomitant]
     Active Substance: PACLITAXEL
     Indication: Non-small cell lung cancer
     Dosage: 300 MILLIGRAM, SINGLE
     Route: 041
     Dates: start: 20210929, end: 20210929
  8. PACLITAXEL [Concomitant]
     Active Substance: PACLITAXEL
     Dosage: 250 MILLIGRAM, ONCE/3WEEKS
     Route: 041
     Dates: start: 20211020, end: 20211201
  9. DECADRON [Concomitant]
     Active Substance: DEXAMETHASONE
     Dosage: 0.5 UNK
     Route: 048

REACTIONS (3)
  - Febrile neutropenia [Recovered/Resolved]
  - Rash [Recovered/Resolved]
  - Diarrhoea [Recovered/Resolved]

NARRATIVE: CASE EVENT DATE: 20211006
